FAERS Safety Report 9240338 (Version 2)
Quarter: 2013Q2

REPORT INFORMATION
  Report Type: Spontaneous
  Country: US (occurrence: None)
  Receive Date: 20121120
  Receipt Date: 20130220
  Transmission Date: 20140414
  Serious: Yes (Other)
  Sender: FDA-Public Use
  Company Number: 1000038531

PATIENT
  Age: 94 Year
  Sex: Male

DRUGS (9)
  1. VIIBRYD [Suspect]
     Dosage: 10 MG (10 MG, 1 IN 1 D)
  2. VIIBRYD [Suspect]
     Dosage: 40 MG (40 MG, 1 IN 1 D)
  3. VIIBRYD [Suspect]
     Dosage: 20 MG (20 MG, 1 IN 1 D)
  4. CITALOPRAM [Suspect]
     Indication: DEPRESSION
     Dosage: 20 MG (20 MG, 1 IN 1 D)
  5. CITALOPRAM [Suspect]
     Indication: DEPRESSION
     Dosage: 40 MG (40 MG, 1 IN 1 D)
  6. CITALOPRAM [Suspect]
     Indication: DEPRESSION
     Dosage: 20 MG (20 MG, 1 IN 1 D)
  7. MORPHINE (MORPHINE) [Concomitant]
  8. SEROQUEL (QUETIAPINE FUMARATE) [Concomitant]
  9. GABAPENTIN (GABAPENTIN) [Concomitant]

REACTIONS (4)
  - Serotonin syndrome [None]
  - Medication error [None]
  - Agitation [None]
  - Insomnia [None]
